FAERS Safety Report 9438862 (Version 3)
Quarter: 2014Q1

REPORT INFORMATION
  Report Type: Spontaneous
  Country: SE (occurrence: SE)
  Receive Date: 20130802
  Receipt Date: 20140122
  Transmission Date: 20141002
  Serious: Yes (Other)
  Sender: FDA-Public Use
  Company Number: SE-B.I. PHARMACEUTICALS,INC./RIDGEFIELD-2013-SW-00379SW

PATIENT
  Sex: Male

DRUGS (1)
  1. SIFROL [Suspect]
     Indication: PARKINSON^S DISEASE
     Dosage: TABLET STRENGTH 0.18 MG
     Dates: start: 2011, end: 2013

REACTIONS (2)
  - Pathological gambling [Unknown]
  - Personality change [Unknown]
